FAERS Safety Report 25993449 (Version 1)
Quarter: 2025Q4

REPORT INFORMATION
  Report Type: Spontaneous
  Country: CA (occurrence: CA)
  Receive Date: 20251104
  Receipt Date: 20251104
  Transmission Date: 20260117
  Serious: Yes (Other)
  Sender: TEVA
  Company Number: CA-TEVA-VS-3388530

PATIENT
  Age: 35 Year
  Sex: Male

DRUGS (2)
  1. PANTOPRAZOLE [Suspect]
     Active Substance: PANTOPRAZOLE
     Indication: Product used for unknown indication
     Dosage: PANTOPRAZOLE SODIUM
     Route: 065
  2. IMURAN [Suspect]
     Active Substance: AZATHIOPRINE
     Indication: Crohn^s disease
     Dosage: DOSE FORM : NOT SPECIFIED
     Route: 048

REACTIONS (10)
  - Alanine aminotransferase increased [Unknown]
  - Gastritis [Unknown]
  - Gastric mucosal lesion [Unknown]
  - Ileal stenosis [Unknown]
  - Decreased appetite [Unknown]
  - Night sweats [Unknown]
  - Gastrooesophageal reflux disease [Unknown]
  - Fistula of small intestine [Unknown]
  - Oesophagitis [Unknown]
  - Sleep disorder [Unknown]
